FAERS Safety Report 25706724 (Version 3)
Quarter: 2025Q4

REPORT INFORMATION
  Report Type: Spontaneous
  Country: US (occurrence: US)
  Receive Date: 20250820
  Receipt Date: 20251210
  Transmission Date: 20260118
  Serious: No
  Sender: SANOFI AVENTIS
  Company Number: US-SA-2025SA246096

PATIENT
  Age: 87 Year
  Sex: Female
  Weight: 55.91 kg

DRUGS (22)
  1. DUPIXENT [Suspect]
     Active Substance: DUPILUMAB
     Indication: Dermatitis atopic
     Dosage: 300 MG, QOW
     Route: 058
  2. EUCERIN ECZEMA RELIEF [Concomitant]
  3. TRIAMCINOLONE ACETONIDE [Concomitant]
     Active Substance: TRIAMCINOLONE ACETONIDE
  4. VITAMIN D3 [Concomitant]
     Active Substance: CHOLECALCIFEROL
  5. VITAMINS [Concomitant]
     Active Substance: VITAMINS
  6. DEXILANT [Concomitant]
     Active Substance: DEXLANSOPRAZOLE
  7. DESVENLAFAXINE [Concomitant]
     Active Substance: DESVENLAFAXINE
  8. EZETIMIBE [Concomitant]
     Active Substance: EZETIMIBE
  9. CELEBREX [Concomitant]
     Active Substance: CELECOXIB
  10. PROLIA [Concomitant]
     Active Substance: DENOSUMAB
  11. CALCIUM [Concomitant]
     Active Substance: CALCIUM
  12. GABAPENTIN [Concomitant]
     Active Substance: GABAPENTIN
  13. ROSUVASTATIN [Concomitant]
     Active Substance: ROSUVASTATIN
  14. MELATONIN [Concomitant]
     Active Substance: MELATONIN
  15. NORCO [Concomitant]
     Active Substance: ACETAMINOPHEN\HYDROCODONE BITARTRATE
  16. LINZESS [Concomitant]
     Active Substance: LINACLOTIDE
  17. ALPRAZOLAM [Concomitant]
     Active Substance: ALPRAZOLAM
  18. NORTRIPTYLINE [Concomitant]
     Active Substance: NORTRIPTYLINE
  19. FUROSEMIDE [Concomitant]
     Active Substance: FUROSEMIDE
  20. RESTASIS [Concomitant]
     Active Substance: CYCLOSPORINE
  21. ARNICA MONTANA FLOWER [Concomitant]
     Active Substance: ARNICA MONTANA FLOWER
  22. VITAMINS [Concomitant]
     Active Substance: VITAMINS

REACTIONS (9)
  - Rash macular [Not Recovered/Not Resolved]
  - Contusion [Not Recovered/Not Resolved]
  - Fatigue [Unknown]
  - Discomfort [Unknown]
  - Dizziness [Unknown]
  - Dry eye [Unknown]
  - Extra dose administered [Unknown]
  - Accidental exposure to product [Unknown]
  - Exposure via skin contact [Unknown]

NARRATIVE: CASE EVENT DATE: 20251126
